FAERS Safety Report 5797146-2 (Version None)
Quarter: 2008Q3

REPORT INFORMATION
  Report Type: 
  Country: None (occurrence: None)
  Receive Date: 20080701
  Receipt Date: 20080619
  Transmission Date: 20090109
  Serious: Yes (Hospitalization)
  Sender: FDA-Public Use
  Company Number: PHHY2008JP10637

PATIENT
  Age: 38 Year
  Sex: Female
  Weight: 33 kg

DRUGS (3)
  1. TEGRETOL [Suspect]
     Dosage: 900 MG, UNK
     Route: 065
  2. 1-ALPHA-HYDROXYCHOLECALCIFEROL [Concomitant]
     Dosage: 1UG
  3. PHENOBARBITAL TAB [Concomitant]
     Dosage: 130 MG

REACTIONS (4)
  - BLOOD PARATHYROID HORMONE INCREASED [None]
  - BONE DENSITY DECREASED [None]
  - URINE CALCIUM/CREATININE RATIO INCREASED [None]
  - VITAMIN D DEFICIENCY [None]
